FAERS Safety Report 10173659 (Version 1)
Quarter: 2014Q2

REPORT INFORMATION
  Report Type: Spontaneous
  Country: FR (occurrence: FR)
  Receive Date: 20140515
  Receipt Date: 20140515
  Transmission Date: 20141212
  Serious: Yes (Hospitalization)
  Sender: FDA-Public Use
  Company Number: FR-009507513-1405FRA003750

PATIENT
  Age: 54 Year
  Sex: Female

DRUGS (3)
  1. COZAAR 50 MG, COMPRIM? PELLICUL? [Suspect]
     Dosage: UNK
     Route: 048
     Dates: start: 20140103
  2. COLCHIMAX (COLCHICINE (+) DICYCLOMINE HYDROCHLORIDE) [Suspect]
     Dosage: UNK
     Route: 048
     Dates: start: 20140103
  3. ALLOPURINOL [Suspect]
     Dosage: UNK
     Route: 048
     Dates: start: 20140103

REACTIONS (1)
  - Stevens-Johnson syndrome [Recovered/Resolved]
